FAERS Safety Report 12485050 (Version 2)
Quarter: 2020Q2

REPORT INFORMATION
  Report Type: Report from Study
  Country: KR (occurrence: KR)
  Receive Date: 20160621
  Receipt Date: 20200612
  Transmission Date: 20200713
  Serious: Yes (Hospitalization, Other)
  Sender: FDA-Public Use
  Company Number: KR-GLAXOSMITHKLINE-KR2016GSK087088

PATIENT
  Age: 69 Year
  Sex: Male

DRUGS (3)
  1. UMECLIDINIUM BR+VILANTEROL TRIFENATATE [Suspect]
     Active Substance: UMECLIDINIUM BROMIDE\VILANTEROL TRIFENATATE
     Indication: CHRONIC OBSTRUCTIVE PULMONARY DISEASE
     Dosage: 25 MG, QD
     Route: 055
     Dates: start: 20151209
  2. CODAEWON-FORTE SYRUP [Concomitant]
     Indication: PRODUCTIVE COUGH
  3. CODAEWON-FORTE SYRUP [Concomitant]
     Indication: COUGH
     Dosage: 20 ML, TID
     Route: 048
     Dates: start: 20151209

REACTIONS (1)
  - Pneumonia [Recovered/Resolved]

NARRATIVE: CASE EVENT DATE: 20160212
